FAERS Safety Report 19176932 (Version 1)
Quarter: 2021Q2

REPORT INFORMATION
  Report Type: Spontaneous
  Country: US (occurrence: US)
  Receive Date: 20210424
  Receipt Date: 20210424
  Transmission Date: 20210717
  Serious: Yes (Hospitalization)
  Sender: FDA-Public Use
  Company Number: US-TEVA-2021-US-1904144

PATIENT

DRUGS (1)
  1. ALPRAZOLAM ACTAVIS [Suspect]
     Active Substance: ALPRAZOLAM
     Route: 065

REACTIONS (6)
  - Anxiety [Unknown]
  - Tremor [Unknown]
  - Balance disorder [Unknown]
  - Product quality issue [Unknown]
  - Insomnia [Unknown]
  - Blood pressure increased [Unknown]
